FAERS Safety Report 5168018-1 (Version None)
Quarter: 2006Q4

REPORT INFORMATION
  Report Type: 
  Country: None (occurrence: None)
  Receive Date: 20061208
  Receipt Date: 20060223
  Transmission Date: 20070319
  Serious: No
  Sender: FDA-Public Use
  Company Number: US-GLAXOSMITHKLINE-A0594955A

PATIENT
  Age: 41 Year
  Sex: Male

DRUGS (5)
  1. AVANDAMET [Suspect]
     Dosage: 2TAB TWICE PER DAY
     Route: 048
     Dates: start: 20050101
  2. AVANDIA [Suspect]
     Dosage: 8MG TWICE PER DAY
     Route: 048
     Dates: start: 20051101
  3. METFORMIN [Suspect]
     Dosage: 1000MG TWICE PER DAY
     Route: 048
     Dates: start: 20051101
  4. METFORMIN [Concomitant]
  5. LIPITOR [Concomitant]

REACTIONS (3)
  - DRUG INEFFECTIVE [None]
  - FATIGUE [None]
  - PRESCRIBED OVERDOSE [None]
